FAERS Safety Report 4423156-3 (Version None)
Quarter: 2004Q3

REPORT INFORMATION
  Report Type: 
  Country: None (occurrence: None)
  Receive Date: 20040811
  Receipt Date: 20040629
  Transmission Date: 20050211
  Serious: Yes (Other)
  Sender: FDA-Public Use
  Company Number: DE-ROCHE-372741

PATIENT
  Age: 48 Year
  Sex: Female

DRUGS (1)
  1. ROCEPHIN [Suspect]
     Indication: LYME DISEASE
     Dosage: OVER 4 YEARS (ONLY PAUSED ON WEEKENDS). ROCEPHIN WAS GIVEN UP UNTIL 2001/2002.
     Route: 042
     Dates: start: 19980815

REACTIONS (1)
  - HEARING IMPAIRED [None]
